FAERS Safety Report 8216855-9 (Version None)
Quarter: 2012Q1

REPORT INFORMATION
  Report Type: 
  Country: None (occurrence: None)
  Receive Date: 20120316
  Receipt Date: 20120307
  Transmission Date: 20120608
  Serious: Yes (Other)
  Sender: FDA-Public Use
  Company Number: US-ASTRAZENECA-2012SE00053

PATIENT
  Age: 71 Year
  Sex: Female

DRUGS (2)
  1. CRESTOR [Suspect]
     Route: 048
  2. NEXIUM [Suspect]
     Route: 048

REACTIONS (6)
  - BACK PAIN [None]
  - ADVERSE EVENT [None]
  - BARRETT'S OESOPHAGUS [None]
  - FALL [None]
  - DRUG DOSE OMISSION [None]
  - MULTIPLE FRACTURES [None]
